FAERS Safety Report 6158600-7 (Version None)
Quarter: 2009Q2

REPORT INFORMATION
  Report Type: 
  Country: None (occurrence: None)
  Receive Date: 20090415
  Receipt Date: 20090402
  Transmission Date: 20091009
  Serious: Yes (Other)
  Sender: FDA-Public Use
  Company Number: MIN-00490

PATIENT
  Age: 16 Year
  Sex: Male

DRUGS (2)
  1. MINOCYCLINE 100 MG [Suspect]
     Indication: ACNE
     Dosage: 100 MG TWICE A DAY
  2. ALBUTEROL [Concomitant]

REACTIONS (5)
  - ANTINUCLEAR ANTIBODY POSITIVE [None]
  - AUTOIMMUNE HEPATITIS [None]
  - CHOLANGITIS [None]
  - NO THERAPEUTIC RESPONSE [None]
  - SMOOTH MUSCLE ANTIBODY POSITIVE [None]
